FAERS Safety Report 14358209 (Version 3)
Quarter: 2018Q3

REPORT INFORMATION
  Report Type: Report from Study
  Country: US (occurrence: US)
  Receive Date: 20180105
  Receipt Date: 20180822
  Transmission Date: 20181010
  Serious: No
  Sender: FDA-Public Use
  Company Number: US-SA-2017SA194003

PATIENT
  Age: 51 Year
  Sex: Female
  Weight: 53.97 kg

DRUGS (9)
  1. DUPILUMAB [Suspect]
     Active Substance: DUPILUMAB
     Indication: ECZEMA
     Dosage: 300 MG, QOW
     Route: 058
     Dates: start: 20170919
  2. CALCIUM [Concomitant]
     Active Substance: CALCIUM
     Dosage: UNK UNK,UNK
     Route: 065
  3. DUPILUMAB [Suspect]
     Active Substance: DUPILUMAB
     Indication: DERMATITIS ATOPIC
     Dosage: 600 MG, 1X
     Route: 058
     Dates: start: 20170904, end: 20170904
  4. GABAPENTIN. [Concomitant]
     Active Substance: GABAPENTIN
     Indication: RESTLESS LEGS SYNDROME
     Dosage: 100 MG,QD
     Route: 065
     Dates: start: 201407
  5. EUCRISA [Concomitant]
     Active Substance: CRISABOROLE
     Dosage: UNK UNK,UNK
     Route: 065
  6. TRIAMCINOLONE ACETONIDE. [Concomitant]
     Active Substance: TRIAMCINOLONE ACETONIDE
     Dosage: UNK UNK,UNK
     Route: 065
  7. PROTOPIC [Concomitant]
     Active Substance: TACROLIMUS
     Dosage: UNK UNK,UNK
     Route: 065
  8. ESCITALOPRAM OXALATE. [Concomitant]
     Active Substance: ESCITALOPRAM OXALATE
     Dosage: UNK UNK,UNK
     Route: 065
  9. LOSARTAN POTASSIUM. [Concomitant]
     Active Substance: LOSARTAN POTASSIUM
     Dosage: UNK UNK,UNK
     Route: 065

REACTIONS (6)
  - Restless legs syndrome [Unknown]
  - Dry eye [Not Recovered/Not Resolved]
  - Ocular hyperaemia [Not Recovered/Not Resolved]
  - Product use issue [Unknown]
  - Condition aggravated [Unknown]
  - Eye pruritus [Not Recovered/Not Resolved]

NARRATIVE: CASE EVENT DATE: 201709
